FAERS Safety Report 4898386-7 (Version None)
Quarter: 2006Q1

REPORT INFORMATION
  Report Type: 
  Country: None (occurrence: None)
  Receive Date: 20060131
  Receipt Date: 20060131
  Transmission Date: 20060701
  Serious: Yes (Other)
  Sender: FDA-Public Use
  Company Number: None

PATIENT
  Sex: Female
  Weight: 63.5036 kg

DRUGS (2)
  1. GABAPENTIN [Suspect]
     Indication: ASTHENIA
     Dosage: 600MG ONE TO TWO PO
     Route: 048
  2. GABAPENTIN [Suspect]
     Indication: NEUROPATHY
     Dosage: 600MG ONE TO TWO PO
     Route: 048

REACTIONS (2)
  - DIZZINESS [None]
  - NAUSEA [None]
